FAERS Safety Report 5196305-X (Version None)
Quarter: 2007Q1

REPORT INFORMATION
  Report Type: 
  Country: None (occurrence: None)
  Receive Date: 20070102
  Receipt Date: 20061221
  Transmission Date: 20070707
  Serious: Yes (Death, Life-Threatening)
  Sender: FDA-Public Use
  Company Number: AR-PFIZER INC-2006155355

PATIENT
  Sex: Female

DRUGS (2)
  1. LINEZOLID SOLUTION, STERILE [Suspect]
  2. CEFTAZIDIME [Suspect]
     Indication: PNEUMONIA
     Dosage: DAILY DOSE:2GRAM
     Route: 042
     Dates: start: 20061123, end: 20061126

REACTIONS (9)
  - ALANINE AMINOTRANSFERASE INCREASED [None]
  - ASPARTATE AMINOTRANSFERASE INCREASED [None]
  - COAGULOPATHY [None]
  - HEPATIC FUNCTION ABNORMAL [None]
  - HYPOPERFUSION [None]
  - MULTI-ORGAN FAILURE [None]
  - PROTHROMBIN TIME SHORTENED [None]
  - RESPIRATORY FAILURE [None]
  - SEPTIC SHOCK [None]
